FAERS Safety Report 9011643 (Version 1)
Quarter: 2013Q1

REPORT INFORMATION
  Report Type: Spontaneous
  Country: CH (occurrence: CH)
  Receive Date: 20130108
  Receipt Date: 20130108
  Transmission Date: 20140127
  Serious: Yes (Other)
  Sender: FDA-Public Use
  Company Number: CH-BAXTER-2013BAX000765

PATIENT
  Sex: 0

DRUGS (7)
  1. ENDOXAN 1 G [Suspect]
     Indication: HODGKIN^S DISEASE
  2. BLEOMYCIN [Suspect]
     Indication: HODGKIN^S DISEASE
  3. ETOPOSIDE [Suspect]
     Indication: HODGKIN^S DISEASE
  4. DOXORUBICIN [Suspect]
     Indication: HODGKIN^S DISEASE
  5. VINCRISTINE [Suspect]
     Indication: HODGKIN^S DISEASE
  6. PROCARBAZINE [Suspect]
     Indication: HODGKIN^S DISEASE
  7. PREDNISONE [Suspect]
     Indication: HODGKIN^S DISEASE

REACTIONS (2)
  - Encephalopathy [Unknown]
  - Toxicity to various agents [None]
